FAERS Safety Report 20704040 (Version 6)
Quarter: 2024Q2

REPORT INFORMATION
  Report Type: Spontaneous
  Country: ES (occurrence: ES)
  Receive Date: 20220413
  Receipt Date: 20240627
  Transmission Date: 20240716
  Serious: Yes (Hospitalization, Other)
  Sender: FDA-Public Use
  Company Number: ES-GLAXOSMITHKLINE-ES2022GSK055157

PATIENT
  Age: 60 Year
  Sex: Male

DRUGS (29)
  1. AMISULPRIDE [Suspect]
     Active Substance: AMISULPRIDE
     Indication: Schizoaffective disorder bipolar type
     Dosage: 400 MILLIGRAM, ONCE A DAY
     Route: 065
     Dates: start: 1994, end: 201512
  2. AMISULPRIDE [Suspect]
     Active Substance: AMISULPRIDE
     Dosage: 800 MILLIGRAM, ONCE A DAY
     Route: 065
     Dates: start: 201512, end: 201604
  3. AMISULPRIDE [Suspect]
     Active Substance: AMISULPRIDE
     Dosage: 600 MILLIGRAM, ONCE A DAY
     Route: 065
     Dates: start: 201604, end: 201606
  4. AMISULPRIDE [Suspect]
     Active Substance: AMISULPRIDE
     Dosage: 400 MILLIGRAM, ONCE A DAY
     Route: 065
     Dates: start: 201606
  5. ESCITALOPRAM [Suspect]
     Active Substance: ESCITALOPRAM OXALATE
     Indication: Schizoaffective disorder bipolar type
     Dosage: 15 MILLIGRAM, ONCE A DAY
     Route: 065
     Dates: start: 1994, end: 201512
  6. ESCITALOPRAM [Suspect]
     Active Substance: ESCITALOPRAM OXALATE
     Dosage: 15 MILLIGRAM, ONCE A DAY
     Route: 065
     Dates: start: 201606, end: 201609
  7. ESCITALOPRAM [Suspect]
     Active Substance: ESCITALOPRAM OXALATE
     Dosage: 20 MILLIGRAM
     Route: 065
     Dates: start: 201702, end: 201705
  8. FLUOXETINE [Interacting]
     Active Substance: FLUOXETINE HYDROCHLORIDE
     Indication: Behaviour disorder
     Dosage: 20 MILLIGRAM
     Route: 065
     Dates: start: 201604, end: 201606
  9. ARIPIPRAZOLE [Suspect]
     Active Substance: ARIPIPRAZOLE
     Indication: Schizoaffective disorder
     Dosage: 10 MILLIGRAM
     Route: 065
     Dates: start: 201702, end: 201705
  10. ARIPIPRAZOLE [Suspect]
     Active Substance: ARIPIPRAZOLE
     Dosage: 400 MILLIGRAM
     Route: 065
     Dates: start: 201712
  11. OLANZAPINE [Suspect]
     Active Substance: OLANZAPINE
     Indication: Schizoaffective disorder
     Dosage: 20 MILLIGRAM, ONCE A DAY
     Route: 065
     Dates: start: 201610, end: 201702
  12. OLANZAPINE [Suspect]
     Active Substance: OLANZAPINE
     Dosage: 20 MILLIGRAM
     Route: 065
     Dates: start: 201705, end: 201712
  13. QUETIAPINE [Interacting]
     Active Substance: QUETIAPINE
     Indication: Behaviour disorder
     Dosage: 100 MILLIGRAM, ONCE A DAY
     Route: 065
     Dates: start: 201604, end: 201606
  14. QUETIAPINE [Interacting]
     Active Substance: QUETIAPINE
     Indication: Schizoaffective disorder
  15. VALPROATE SODIUM [Suspect]
     Active Substance: VALPROATE SODIUM
     Indication: Schizoaffective disorder
     Dosage: 500 MILLIGRAM, ONCE A DAY
     Route: 065
     Dates: start: 201606, end: 201609
  16. VALPROATE SODIUM [Suspect]
     Active Substance: VALPROATE SODIUM
     Dosage: 1000 MILLIGRAM, ONCE A DAY
     Route: 065
     Dates: start: 201610, end: 201705
  17. LORMETAZEPAM [Suspect]
     Active Substance: LORMETAZEPAM
     Indication: Behaviour disorder
     Dosage: UNK
     Route: 065
     Dates: start: 20160425, end: 20160613
  18. LORMETAZEPAM [Suspect]
     Active Substance: LORMETAZEPAM
     Indication: Schizoaffective disorder
  19. LORAZEPAM [Suspect]
     Active Substance: LORAZEPAM
     Indication: Behaviour disorder
     Dosage: UNK
     Route: 065
     Dates: start: 20160425, end: 20161004
  20. LORAZEPAM [Suspect]
     Active Substance: LORAZEPAM
     Indication: Schizoaffective disorder
     Dosage: UNK
     Route: 065
     Dates: start: 201705, end: 201712
  21. TRAZODONE [Suspect]
     Active Substance: TRAZODONE HYDROCHLORIDE
     Indication: Schizoaffective disorder bipolar type
     Dosage: 200 MILLIGRAM, ONCE A DAY
     Route: 065
     Dates: start: 1994, end: 201512
  22. TRAZODONE [Suspect]
     Active Substance: TRAZODONE HYDROCHLORIDE
     Dosage: 200 MILLIGRAM, ONCE A DAY
     Route: 065
     Dates: start: 201606, end: 201609
  23. CLOBAZAM [Suspect]
     Active Substance: CLOBAZAM
     Indication: Schizoaffective disorder bipolar type
     Dosage: UNK
     Route: 065
     Dates: start: 1994, end: 20160118
  24. LITHIUM [Suspect]
     Active Substance: LITHIUM
     Indication: Schizoaffective disorder bipolar type
     Dosage: 800 MILLIGRAM, ONCE A DAY
     Route: 065
     Dates: start: 1994, end: 201604
  25. LITHIUM [Suspect]
     Active Substance: LITHIUM
     Dosage: 600 MILLIGRAM
     Route: 065
     Dates: start: 201702, end: 201705
  26. LITHIUM [Suspect]
     Active Substance: LITHIUM
     Dosage: 1200 MILLIGRAM
     Route: 065
     Dates: start: 201712
  27. CLONAZEPAM [Suspect]
     Active Substance: CLONAZEPAM
     Indication: Schizoaffective disorder
     Dosage: UNK
     Route: 065
     Dates: start: 201702
  28. LEVOMEPROMAZINE [Suspect]
     Active Substance: LEVOMEPROMAZINE
     Indication: Schizoaffective disorder
     Dosage: 100 MILLIGRAM, ONCE A DAY
     Route: 065
     Dates: start: 201610, end: 201702
  29. HALOPERIDOL [Suspect]
     Active Substance: HALOPERIDOL
     Indication: Schizoaffective disorder
     Dosage: UNK
     Route: 065
     Dates: start: 201705, end: 201712

REACTIONS (17)
  - Behaviour disorder [Unknown]
  - Deep vein thrombosis [Recovered/Resolved]
  - Emotional disorder [Unknown]
  - Extrapyramidal disorder [Recovered/Resolved]
  - Gastrointestinal haemorrhage [Recovered/Resolved]
  - Sexually inappropriate behaviour [Unknown]
  - Speech disorder [Unknown]
  - Suicide attempt [Unknown]
  - Intentional overdose [Unknown]
  - Drug ineffective [Unknown]
  - Hyperprolactinaemia [Recovered/Resolved]
  - Drug-genetic interaction [Unknown]
  - Condition aggravated [Unknown]
  - Insomnia [Recovered/Resolved]
  - Sedation [Recovered/Resolved]
  - Somnolence [Unknown]
  - Drug interaction [Unknown]

NARRATIVE: CASE EVENT DATE: 20151201
